FAERS Safety Report 4542497-2 (Version None)
Quarter: 2004Q4

REPORT INFORMATION
  Report Type: 
  Country: None (occurrence: None)
  Receive Date: 20041227
  Receipt Date: 20041221
  Transmission Date: 20050328
  Serious: Yes (Hospitalization)
  Sender: FDA-Public Use
  Company Number: 210753

PATIENT
  Age: 77 Year
  Sex: Male

DRUGS (5)
  1. RITUXAN [Suspect]
     Indication: WALDENSTROM'S MACROGLOBULINAEMIA
     Dates: start: 20020109, end: 20041124
  2. NIFEDIPINE (NEFEDIPINE) [Concomitant]
  3. ATENOLOL + CHLORTHALIDONE(ATENOLOL, CHLORTHALIDONE) [Concomitant]
  4. ALLOPURINOL [Concomitant]
  5. POTASSIUM (POTASSIUM NOS) [Concomitant]

REACTIONS (2)
  - BILIARY TRACT DISORDER [None]
  - CHOLELITHIASIS [None]
